FAERS Safety Report 23245880 (Version 1)
Quarter: 2023Q4

REPORT INFORMATION
  Report Type: Spontaneous
  Country: US (occurrence: None)
  Receive Date: 20231129
  Receipt Date: 20231129
  Transmission Date: 20240109
  Serious: Yes (Other)
  Sender: FDA-Public Use
  Company Number: None

PATIENT
  Age: 45 Year
  Sex: Female
  Weight: 63 kg

DRUGS (8)
  1. OZEMPIC [Suspect]
     Active Substance: SEMAGLUTIDE
     Indication: Insulin resistance
     Dosage: OTHER QUANTITY : 0.5 INJECTION(S);?FREQUENCY : EVERY OTHER WEEK;?
     Route: 058
  2. WARFARIN [Concomitant]
     Active Substance: WARFARIN
  3. UNSPECIFIED INGREDIENT [Concomitant]
     Active Substance: UNSPECIFIED INGREDIENT
  4. Gerd [Concomitant]
  5. insomnia [Concomitant]
  6. IRON [Concomitant]
     Active Substance: IRON
  7. MAGNESIUM [Concomitant]
     Active Substance: MAGNESIUM
  8. CALCIUM [Concomitant]
     Active Substance: CALCIUM

REACTIONS (1)
  - Migraine [None]

NARRATIVE: CASE EVENT DATE: 20231129
